FAERS Safety Report 20531645 (Version 2)
Quarter: 2022Q2

REPORT INFORMATION
  Report Type: Spontaneous
  Country: US (occurrence: US)
  Receive Date: 20220301
  Receipt Date: 20220404
  Transmission Date: 20220721
  Serious: Yes (Hospitalization)
  Sender: FDA-Public Use
  Company Number: US-SMITH AND NEPHEW, INC-2022SMT00029

PATIENT
  Sex: Male
  Weight: 103.86 kg

DRUGS (11)
  1. COLLAGENASE SANTYL [Suspect]
     Active Substance: COLLAGENASE CLOSTRIDIUM HISTOLYTICUM
     Indication: Ulcer
     Dosage: UNK UNK, 2X/DAY TO THE LEFT HEEL
     Route: 061
     Dates: start: 20211221
  2. ELIQUIS [Concomitant]
     Active Substance: APIXABAN
  3. FUROSEMIDE [Concomitant]
     Active Substance: FUROSEMIDE
  4. ASPIRIN [Concomitant]
     Active Substance: ASPIRIN
  5. LISINOPRIL [Concomitant]
     Active Substance: LISINOPRIL
  6. CARVEDILOL [Concomitant]
     Active Substance: CARVEDILOL
  7. PLAVIX [Concomitant]
     Active Substance: CLOPIDOGREL BISULFATE
  8. ROSUVASTATIN [Concomitant]
     Active Substance: ROSUVASTATIN
  9. GLIMEPIRIDE [Concomitant]
     Active Substance: GLIMEPIRIDE
  10. GABAPENTIN [Concomitant]
     Active Substance: GABAPENTIN
  11. JANUVIA [Concomitant]
     Active Substance: SITAGLIPTIN PHOSPHATE

REACTIONS (1)
  - Wound drainage [Unknown]
